FAERS Safety Report 7745391-9 (Version None)
Quarter: 2011Q3

REPORT INFORMATION
  Report Type: 
  Country: None (occurrence: None)
  Receive Date: 20110908
  Receipt Date: 20110823
  Transmission Date: 20111222
  Serious: Yes (Death, Other)
  Sender: FDA-Public Use
  Company Number: FK201101799

PATIENT
  Age: 56 Year
  Sex: Female

DRUGS (2)
  1. CARBOPLATIN [Suspect]
     Indication: NON-SMALL CELL LUNG CANCER METASTATIC
  2. PEMETREXED [Suspect]
     Indication: NON-SMALL CELL LUNG CANCER METASTATIC

REACTIONS (14)
  - GASTRITIS [None]
  - NAUSEA [None]
  - ENTEROCOLITIS [None]
  - SEPSIS [None]
  - DISSEMINATED INTRAVASCULAR COAGULATION [None]
  - CATHETER SITE INFLAMMATION [None]
  - PANCYTOPENIA [None]
  - GASTROINTESTINAL FUNGAL INFECTION [None]
  - PETECHIAE [None]
  - PSEUDOMONAS INFECTION [None]
  - ASPERGILLOSIS [None]
  - DEHYDRATION [None]
  - FEBRILE NEUTROPENIA [None]
  - PAIN [None]
